FAERS Safety Report 4838025-4 (Version None)
Quarter: 2005Q4

REPORT INFORMATION
  Report Type: 
  Country: None (occurrence: None)
  Receive Date: 20051123
  Receipt Date: 20051117
  Transmission Date: 20060501
  Serious: Yes (Death)
  Sender: FDA-Public Use
  Company Number: EM2005-0392

PATIENT
  Age: 45 Year
  Sex: Female

DRUGS (5)
  1. PROLEUKIN [Suspect]
     Indication: MALIGNANT MELANOMA
     Dosage: 9 MIU/M2, 5X/WEEK, SUBCUTAN.
     Route: 058
  2. INTERFERON ALFA-2B(INTERFERON ALFA-2B) [Suspect]
     Indication: MALIGNANT MELANOMA
     Dosage: 5 MIU/M2, 5X/WEEK, SUBCUTAN.
     Route: 058
  3. CISPLATIN [Concomitant]
  4. VINBLASTINE [Concomitant]
  5. DACARBAZINE [Concomitant]

REACTIONS (3)
  - FEBRILE NEUTROPENIA [None]
  - NAUSEA [None]
  - VOMITING [None]
